FAERS Safety Report 12422404 (Version 1)
Quarter: 2016Q2

REPORT INFORMATION
  Report Type: Spontaneous
  Country: US (occurrence: US)
  Receive Date: 20160601
  Receipt Date: 20160601
  Transmission Date: 20160815
  Serious: Yes (Life-Threatening, Hospitalization, Other)
  Sender: FDA-Public Use
  Company Number: US-WEST-WARD PHARMACEUTICALS CORP.-WW-153504

PATIENT
  Age: 60 Year
  Sex: Male
  Weight: 98.97 kg

DRUGS (3)
  1. PF-04449913 [Suspect]
     Active Substance: GLASDEGIB
     Indication: ACUTE MYELOID LEUKAEMIA
     Route: 048
     Dates: start: 20140609, end: 20140622
  2. CYTARABINE. [Suspect]
     Active Substance: CYTARABINE
     Indication: ACUTE MYELOID LEUKAEMIA
     Route: 042
     Dates: start: 20140612, end: 20140619
  3. DAUNORUBICIN [Suspect]
     Active Substance: DAUNORUBICIN
     Indication: ACUTE MYELOID LEUKAEMIA
     Route: 040
     Dates: start: 20140612, end: 20140614

REACTIONS (7)
  - Nephritis [Recovered/Resolved]
  - Pyrexia [Unknown]
  - Hypoxia [Unknown]
  - Adenovirus infection [Recovered/Resolved]
  - Pneumonia [Recovered/Resolved]
  - Pancytopenia [Unknown]
  - Respiratory distress [Unknown]

NARRATIVE: CASE EVENT DATE: 201406
